FAERS Safety Report 8261383-8 (Version None)
Quarter: 2012Q2

REPORT INFORMATION
  Report Type: 
  Country: None (occurrence: None)
  Receive Date: 20120405
  Receipt Date: 20120402
  Transmission Date: 20120825
  Serious: Yes (Other)
  Sender: FDA-Public Use
  Company Number: US-PFIZER INC-2012040203

PATIENT
  Age: 81 Year
  Sex: Female

DRUGS (3)
  1. PREMARIN [Suspect]
     Indication: OFF LABEL USE
     Dosage: 0.625 MG, UNK
  2. PREMARIN [Suspect]
     Indication: BREAST DISORDER
     Dosage: 0.625 MG, UNK
  3. SYNTHROID [Suspect]
     Dosage: UNK

REACTIONS (3)
  - MIGRAINE [None]
  - BRAIN NEOPLASM [None]
  - BREAST PAIN [None]
